FAERS Safety Report 7474388-1 (Version None)
Quarter: 2011Q2

REPORT INFORMATION
  Report Type: 
  Country: None (occurrence: None)
  Receive Date: 20110511
  Receipt Date: 20110405
  Transmission Date: 20111010
  Serious: Yes (Other)
  Sender: FDA-Public Use
  Company Number: DE-BAYER-2011-029574

PATIENT
  Age: 10 Year
  Sex: Female

DRUGS (14)
  1. MAGNEVIST [Suspect]
     Dosage: 10 ML, ONCE
     Dates: start: 20070101, end: 20070101
  2. MAGNEVIST [Suspect]
     Dosage: 10 ML, ONCE
     Dates: start: 20070501, end: 20070501
  3. MAGNEVIST [Suspect]
     Dosage: 10 ML, ONCE
     Dates: start: 20070801, end: 20070801
  4. MAGNEVIST [Suspect]
     Dosage: UNK
     Dates: start: 20080401, end: 20080401
  5. MAGNEVIST [Suspect]
     Dosage: 10 ML, ONCE
     Dates: start: 20080801, end: 20080801
  6. MAGNEVIST [Suspect]
     Dosage: 10 ML, ONCE
     Dates: start: 20090401, end: 20090401
  7. MAGNEVIST [Suspect]
     Indication: NUCLEAR MAGNETIC RESONANCE IMAGING
     Dosage: 10 ML, ONCE
     Dates: start: 20061001, end: 20061001
  8. MAGNEVIST [Suspect]
     Dosage: 10 ML, ONCE
     Dates: start: 20090901, end: 20090901
  9. MAGNEVIST [Suspect]
     Dosage: UNK
     Dates: start: 20090201, end: 20090201
  10. MAGNEVIST [Suspect]
     Dosage: 10 ML, ONCE
     Dates: start: 20071201, end: 20071201
  11. MAGNEVIST [Suspect]
     Dosage: 10 ML, ONCE
     Dates: start: 20100901, end: 20100901
  12. MAGNEVIST [Suspect]
     Dosage: UNK
     Dates: start: 20071001, end: 20071001
  13. MAGNEVIST [Suspect]
     Dosage: 10 ML, ONCE
     Dates: start: 20080201, end: 20080201
  14. MAGNEVIST [Suspect]
     Dosage: UNK
     Dates: start: 20070401, end: 20070401

REACTIONS (2)
  - HEPATOMEGALY [None]
  - TRANSAMINASES INCREASED [None]
